FAERS Safety Report 8420338-0 (Version None)
Quarter: 2012Q2

REPORT INFORMATION
  Report Type: 
  Country: None (occurrence: None)
  Receive Date: 20120607
  Receipt Date: 20120530
  Transmission Date: 20120825
  Serious: Yes (Other)
  Sender: FDA-Public Use
  Company Number: US-TEVA-338016USA

PATIENT
  Sex: Male

DRUGS (1)
  1. PROAIR HFA [Suspect]
     Dosage: 450 MICROGRAM;
     Dates: start: 20111101

REACTIONS (2)
  - ASTHMA [None]
  - INCORRECT DOSE ADMINISTERED BY DEVICE [None]
